FAERS Safety Report 4891241-8 (Version None)
Quarter: 2006Q1

REPORT INFORMATION
  Report Type: 
  Country: None (occurrence: None)
  Receive Date: 20060125
  Receipt Date: 20060110
  Transmission Date: 20060701
  Serious: Yes (Hospitalization)
  Sender: FDA-Public Use
  Company Number: NLWYE289010JAN06

PATIENT
  Sex: Female

DRUGS (3)
  1. ENBREL [Suspect]
     Indication: RHEUMATOID ARTHRITIS
     Route: 065
     Dates: start: 20051101, end: 20051209
  2. ENBREL [Suspect]
     Route: 065
     Dates: start: 20031201, end: 20051101
  3. ENBREL [Suspect]
     Route: 065
     Dates: start: 20060105

REACTIONS (1)
  - APPENDICITIS PERFORATED [None]
